FAERS Safety Report 8838493 (Version 1)
Quarter: 2012Q4

REPORT INFORMATION
  Report Type: 
  Country: US (occurrence: US)
  Receive Date: 20121012
  Receipt Date: 20121012
  Transmission Date: 20130627
  Serious: Yes (Hospitalization)
  Sender: FDA-Public Use
  Company Number: US-TEVA-363739USA

PATIENT
  Age: 56 Year
  Sex: Female

DRUGS (1)
  1. COPAXONE [Suspect]
     Indication: MULTIPLE SCLEROSIS
     Dates: start: 20011011

REACTIONS (3)
  - Chest pain [Unknown]
  - Chest discomfort [Unknown]
  - Blood pressure increased [Unknown]
